FAERS Safety Report 16936736 (Version 6)
Quarter: 2020Q3

REPORT INFORMATION
  Report Type: Other
  Country: JP (occurrence: JP)
  Receive Date: 20191018
  Receipt Date: 20200922
  Transmission Date: 20201102
  Serious: Yes (Other)
  Sender: FDA-Public Use
  Company Number: JP-ROCHE-2435928

PATIENT
  Age: 50 Year
  Sex: Male
  Weight: 66 kg

DRUGS (9)
  1. PREDNISOLONE. [Concomitant]
     Active Substance: PREDNISOLONE
     Indication: CASTLEMAN^S DISEASE
     Dosage: DOSE INTERVAL UNCERTAINTY
     Route: 065
  2. ACTEMRA [Suspect]
     Active Substance: TOCILIZUMAB
     Indication: CASTLEMAN^S DISEASE
     Route: 041
     Dates: start: 20180731, end: 20180904
  3. ACTEMRA [Suspect]
     Active Substance: TOCILIZUMAB
     Route: 041
     Dates: start: 20180911, end: 20180911
  4. RITUXAN [Suspect]
     Active Substance: RITUXIMAB
     Indication: CASTLEMAN^S DISEASE
  5. PREDNISOLONE. [Concomitant]
     Active Substance: PREDNISOLONE
     Dosage: DOSE INTERVAL UNCERTAINTY
     Route: 065
  6. TAKECAB [Concomitant]
     Active Substance: VONOPRAZAN FUMARATE
     Dosage: DOSAGE IS UNCERTAIN.
     Route: 065
  7. ACTEMRA [Suspect]
     Active Substance: TOCILIZUMAB
     Route: 041
     Dates: start: 20180925, end: 20180925
  8. RITUXAN [Suspect]
     Active Substance: RITUXIMAB
     Indication: PYODERMA GANGRENOSUM
     Route: 041
     Dates: start: 20181016, end: 20181101
  9. REVOLADE [Concomitant]
     Active Substance: ELTROMBOPAG
     Dosage: DOSAGE IS UNCERTAIN.
     Route: 065
     Dates: end: 20181107

REACTIONS (3)
  - Pyoderma gangrenosum [Recovered/Resolved]
  - Off label use [Unknown]
  - Intentional product use issue [Unknown]

NARRATIVE: CASE EVENT DATE: 20180925
